FAERS Safety Report 6992054-3 (Version None)
Quarter: 2010Q3

REPORT INFORMATION
  Report Type: 
  Country: None (occurrence: None)
  Receive Date: 20100917
  Receipt Date: 20100907
  Transmission Date: 20110219
  Serious: Yes (Other)
  Sender: FDA-Public Use
  Company Number: DK-TYCO HEALTHCARE/MALLINCKRODT-T201001967

PATIENT
  Age: 55 Year

DRUGS (2)
  1. SODIUM IODIDE I 131 [Suspect]
     Indication: GOITRE
     Dosage: 100 GY, SINGLE
  2. SALINE                             /00075401/ [Concomitant]
     Indication: GOITRE
     Dosage: 1 ML, SINGLE

REACTIONS (1)
  - HYPOTHYROIDISM [None]
